FAERS Safety Report 7382126-6 (Version None)
Quarter: 2011Q1

REPORT INFORMATION
  Report Type: 
  Country: None (occurrence: None)
  Receive Date: 20110329
  Receipt Date: 20110322
  Transmission Date: 20110831
  Serious: Yes (Death)
  Sender: FDA-Public Use
  Company Number: US-GILEAD-2011-0037771

PATIENT
  Sex: Female

DRUGS (3)
  1. ADCIRCA [Concomitant]
  2. TYVASO [Concomitant]
  3. LETAIRIS [Suspect]
     Indication: PRODUCT USED FOR UNKNOWN INDICATION
     Route: 048
     Dates: start: 20090320, end: 20110322

REACTIONS (1)
  - DEATH [None]
